FAERS Safety Report 9511978 (Version 1)
Quarter: 2013Q1

REPORT INFORMATION
  Report Type: Spontaneous
  Country: US (occurrence: None)
  Receive Date: 20130305
  Receipt Date: 20130305
  Transmission Date: 20140127
  Serious: Yes (Disabling, Other)
  Sender: FDA-Public Use
  Company Number: 163-21880-11120105

PATIENT
  Age: 57 Year
  Sex: Female
  Weight: 44 kg

DRUGS (15)
  1. REVLIMID [Suspect]
     Indication: PLASMA CELL MYELOMA
     Dosage: 5 MG, 1 IN 1 D, PO
     Route: 048
     Dates: start: 201110
  2. LEVAQUIN (LEVOFLOXACIN) [Concomitant]
  3. CEFEPIME (CEFEPIME) [Concomitant]
  4. VANCOMYCIN (VANCOMYCIN) [Concomitant]
  5. ZITHROMAX (AZITHROMYCIN) [Concomitant]
  6. EPOGEN (EPOETIN ALFA) [Concomitant]
  7. ACEMINOPHEN (PARACETAMOL) [Concomitant]
  8. FLORAJEN 3 (FLORAJEN 3) [Concomitant]
  9. CALCIUM CARBONATE (CALCIUJM CARBONATE) [Concomitant]
  10. VITAMINS [Concomitant]
  11. OMEPRAZOLE (OMEPRAZOLE) [Concomitant]
  12. SIMVASTATIN (SIMVASTATIN) [Concomitant]
  13. TUMS (CALCIUM CARBONATE) [Concomitant]
  14. DIALYVITE SUPREME D [Concomitant]
  15. TYLENOL (PARACETAMOL) [Concomitant]

REACTIONS (3)
  - Diarrhoea [None]
  - Pancytopenia [None]
  - Stomatitis [None]
